FAERS Safety Report 8353376-7 (Version None)
Quarter: 2012Q2

REPORT INFORMATION
  Report Type: 
  Country: None (occurrence: None)
  Receive Date: 20120511
  Receipt Date: 20120430
  Transmission Date: 20120825
  Serious: Yes (Hospitalization, Disabling)
  Sender: FDA-Public Use
  Company Number: US-CELGENEUS-163-21880-12050069

PATIENT
  Sex: Female

DRUGS (4)
  1. VIDAZA [Suspect]
     Route: 065
     Dates: start: 20110717
  2. VIDAZA [Suspect]
     Route: 065
     Dates: start: 20120319, end: 20120323
  3. REVLIMID [Suspect]
     Route: 048
     Dates: start: 20110717
  4. REVLIMID [Suspect]
     Route: 048
     Dates: start: 20120319, end: 20120323

REACTIONS (3)
  - PNEUMONIA [None]
  - ISCHAEMIC STROKE [None]
  - HERNIA OBSTRUCTIVE [None]
